FAERS Safety Report 10261393 (Version 1)
Quarter: 2014Q2

REPORT INFORMATION
  Report Type: Spontaneous
  Country: FR (occurrence: None)
  Receive Date: 20140623
  Receipt Date: 20140623
  Transmission Date: 20141212
  Serious: Yes (Other)
  Sender: FDA-Public Use
  Company Number: KAD201406-000622

PATIENT
  Age: 59 Year
  Sex: Female

DRUGS (2)
  1. ANASTROZOLE [Suspect]
     Indication: INVASIVE LOBULAR BREAST CARCINOMA
     Dates: start: 201307
  2. EZETIMIBE (EZETIMIBE) (EZETIMIBE) [Concomitant]

REACTIONS (1)
  - Autoimmune hepatitis [None]
